FAERS Safety Report 9295798 (Version 1)
Quarter: 2013Q1

REPORT INFORMATION
  Report Type: Spontaneous
  Country: US (occurrence: None)
  Receive Date: 20121220
  Receipt Date: 20121220
  Transmission Date: 20140127
  Serious: Yes (Life-Threatening, Hospitalization)
  Sender: FDA-Public Use
  Company Number: 1203USA03256

PATIENT
  Age: 75 Year
  Sex: Male

DRUGS (2)
  1. ZETIA (EZETIMIBE) [Suspect]
     Indication: BLOOD CHOLESTEROL INCREASED
     Route: 048
  2. PRAVASTATIN SODIUM [Concomitant]

REACTIONS (1)
  - Hepatic enzyme increased [None]
